FAERS Safety Report 20712876 (Version 1)
Quarter: 2022Q2

REPORT INFORMATION
  Report Type: Report from Study
  Country: US (occurrence: US)
  Receive Date: 20220415
  Receipt Date: 20220415
  Transmission Date: 20220721
  Serious: No
  Sender: FDA-Public Use
  Company Number: US-BEH-2022144301

PATIENT
  Age: 52 Year
  Sex: Female
  Weight: 90.703 kg

DRUGS (1)
  1. HIZENTRA [Suspect]
     Active Substance: HUMAN IMMUNOGLOBULIN G
     Indication: Primary immunodeficiency syndrome
     Dosage: 12 GRAMS WEEKLY INTO 3 SITES
     Route: 058
     Dates: start: 202107

REACTIONS (7)
  - No adverse event [Unknown]
  - Product use issue [Unknown]
  - Infusion site infection [Unknown]
  - Infusion site warmth [Unknown]
  - Infusion site erythema [Unknown]
  - Weight increased [Unknown]
  - Infusion site discomfort [Unknown]
